FAERS Safety Report 18195989 (Version 1)
Quarter: 2020Q3

REPORT INFORMATION
  Report Type: Spontaneous
  Country: CA (occurrence: CA)
  Receive Date: 20200825
  Receipt Date: 20200825
  Transmission Date: 20201103
  Serious: Yes (Other)
  Sender: FDA-Public Use
  Company Number: CA-PURDUE-USA-2020-0163431

PATIENT
  Age: 56 Year
  Sex: Male

DRUGS (9)
  1. RISPERIDONE. [Suspect]
     Active Substance: RISPERIDONE
     Indication: PRODUCT USED FOR UNKNOWN INDICATION
     Dosage: 5 MG, UNK
     Route: 065
  2. HYDROMORPHONE HCL (SIMILAR TO 19?892) [Suspect]
     Active Substance: HYDROMORPHONE HYDROCHLORIDE
     Indication: EPIDIDYMAL CYST REMOVAL
     Dosage: 2 MG, UNK
     Route: 048
  3. ATIVAN [Suspect]
     Active Substance: LORAZEPAM
     Indication: PRODUCT USED FOR UNKNOWN INDICATION
     Dosage: 1 MG, UNK
     Route: 065
  4. METAMUCIL                          /00091301/ [Concomitant]
     Active Substance: PSYLLIUM HUSK
     Dosage: UNK
     Route: 065
  5. TYLENOL 8HR [Concomitant]
     Active Substance: ACETAMINOPHEN
     Indication: EPIDIDYMAL CYST REMOVAL
  6. ZINC. [Concomitant]
     Active Substance: ZINC
     Dosage: UNK
     Route: 065
  7. CYCLOBENZAPRINE. [Suspect]
     Active Substance: CYCLOBENZAPRINE
     Indication: PRODUCT USED FOR UNKNOWN INDICATION
     Dosage: 10 MG, UNK
     Route: 065
  8. TYLENOL 8HR [Concomitant]
     Active Substance: ACETAMINOPHEN
     Indication: HERNIA REPAIR
     Dosage: UNK
     Route: 065
  9. HYDROMORPHONE HCL (SIMILAR TO 19?892) [Suspect]
     Active Substance: HYDROMORPHONE HYDROCHLORIDE
     Indication: HERNIA REPAIR
     Dosage: UNK
     Route: 065

REACTIONS (3)
  - Malaise [Unknown]
  - Nightmare [Unknown]
  - Suicidal ideation [Unknown]
